FAERS Safety Report 15967487 (Version 1)
Quarter: 2019Q1

REPORT INFORMATION
  Report Type: Report from Study
  Country: DE (occurrence: DE)
  Receive Date: 20190215
  Receipt Date: 20190215
  Transmission Date: 20190418
  Serious: Yes (Death, Hospitalization, Other)
  Sender: FDA-Public Use
  Company Number: DE-MYLANLABS-2019M1013172

PATIENT
  Age: 70 Year
  Sex: Male

DRUGS (3)
  1. REMICADE [Suspect]
     Active Substance: INFLIXIMAB
     Dosage: UNK, DOSAGE FORM: LYOPHILIZED POWDER
     Route: 042
     Dates: start: 201007
  2. REMICADE [Suspect]
     Active Substance: INFLIXIMAB
     Indication: RHEUMATOID ARTHRITIS
     Dosage: DOSAGE FORM: LYOPHILIZED POWDER
     Route: 042
  3. METHOTREXATE. [Suspect]
     Active Substance: METHOTREXATE
     Indication: PRODUCT USED FOR UNKNOWN INDICATION
     Dosage: DOSAGE FORM: UNSPECIFIED, 15 (UNITS UNSPECIFIED)
     Route: 065

REACTIONS (5)
  - Brain injury [Fatal]
  - Arthropathy [Recovered/Resolved]
  - Ventricular fibrillation [Fatal]
  - Malignant melanoma [Unknown]
  - Pneumonia [Fatal]

NARRATIVE: CASE EVENT DATE: 20131031
